FAERS Safety Report 9149088 (Version 3)
Quarter: 2014Q2

REPORT INFORMATION
  Report Type: Spontaneous
  Country: US (occurrence: US)
  Receive Date: 20130308
  Receipt Date: 20140616
  Transmission Date: 20141212
  Serious: No
  Sender: FDA-Public Use
  Company Number: US-ENDO PHARMACEUTICALS INC.-OPCR20121849

PATIENT
  Sex: Male

DRUGS (3)
  1. OPANA ER 30MG [Suspect]
     Indication: NECK PAIN
     Route: 048
     Dates: start: 201206
  2. OPANA ER 30MG [Concomitant]
     Indication: PRODUCT USED FOR UNKNOWN INDICATION
     Route: 048
     Dates: end: 2012
  3. OPANA ER 20MG [Concomitant]
     Indication: NECK PAIN
     Route: 048

REACTIONS (6)
  - Haematuria [Not Recovered/Not Resolved]
  - Feeling abnormal [Not Recovered/Not Resolved]
  - Alopecia [Unknown]
  - Constipation [Not Recovered/Not Resolved]
  - Hyperhidrosis [Recovered/Resolved]
  - Headache [Not Recovered/Not Resolved]
